FAERS Safety Report 14951065 (Version 1)
Quarter: 2018Q2

REPORT INFORMATION
  Report Type: Spontaneous
  Country: US (occurrence: US)
  Receive Date: 20180508
  Receipt Date: 20180508
  Transmission Date: 20180711
  Serious: No
  Sender: FDA-Public Use
  Company Number: None

PATIENT
  Age: 34 Year
  Sex: Female

DRUGS (1)
  1. LETAIRIS [Suspect]
     Active Substance: AMBRISENTAN
     Indication: PULMONARY ARTERIAL HYPERTENSION
     Route: 048
     Dates: end: 20180405

REACTIONS (6)
  - Weight decreased [None]
  - Vomiting [None]
  - Eating disorder [None]
  - Headache [None]
  - Diarrhoea [None]
  - Gastric disorder [None]

NARRATIVE: CASE EVENT DATE: 20180402
